FAERS Safety Report 10351649 (Version 1)
Quarter: 2014Q3

REPORT INFORMATION
  Report Type: Spontaneous
  Country: US (occurrence: US)
  Receive Date: 20140730
  Receipt Date: 20140730
  Transmission Date: 20150326
  Serious: Yes (Hospitalization, Other)
  Sender: FDA-Public Use
  Company Number: US-TEVA-497414USA

PATIENT
  Sex: Female
  Weight: 70.37 kg

DRUGS (2)
  1. COPAXONE [Suspect]
     Active Substance: GLATIRAMER ACETATE
     Indication: MULTIPLE SCLEROSIS
     Dates: start: 1999
  2. BABY ASPIRIN [Concomitant]
     Active Substance: ASPIRIN

REACTIONS (3)
  - Vaginal haemorrhage [Recovered/Resolved]
  - Sarcoma [Not Recovered/Not Resolved]
  - Sarcoma metastatic [Not Recovered/Not Resolved]

NARRATIVE: CASE EVENT DATE: 2013
